FAERS Safety Report 9201598 (Version 1)
Quarter: 2013Q2

REPORT INFORMATION
  Report Type: Spontaneous
  Country: US (occurrence: None)
  Receive Date: 20130401
  Receipt Date: 20130401
  Transmission Date: 20140414
  Serious: Yes (Hospitalization)
  Sender: FDA-Public Use
  Company Number: None

PATIENT
  Age: 81 Year
  Sex: Female
  Weight: 66 kg

DRUGS (22)
  1. WARFARIN [Suspect]
     Indication: DEEP VEIN THROMBOSIS
     Dosage: 1 MG DAILY PO?PRIOR TO ADMISSION
     Route: 048
  2. CETIRIZINE [Concomitant]
  3. AZELASTINE [Concomitant]
  4. FLUTICASONE [Concomitant]
  5. MELOXICAM [Suspect]
  6. QUETIAPINE [Concomitant]
  7. HYDROCODONE/ACETAMINOPHEN [Concomitant]
  8. CYCLOBENZAPRINE [Concomitant]
  9. RABEPRAZOLE [Concomitant]
  10. ALPRAZOLAM [Concomitant]
  11. CEPHALEXIN [Concomitant]
  12. FUROSEMIDE [Concomitant]
  13. CLOPIDOGREL [Concomitant]
  14. MEMANTADINE [Concomitant]
  15. NITROGLYCERIN PATCH [Concomitant]
  16. BENAZEPRIL [Concomitant]
  17. MONTELUKAST [Concomitant]
  18. SIMVASTATIN [Concomitant]
  19. RIVASTIGMINE PATCH [Concomitant]
  20. METOPROLOL XL [Concomitant]
  21. AMLODIPINE [Concomitant]
  22. RANOLAZINE [Concomitant]

REACTIONS (8)
  - Gastritis [None]
  - Cough [None]
  - Pulseless electrical activity [None]
  - Ventricular tachycardia [None]
  - Melaena [None]
  - Sepsis [None]
  - Anaemia [None]
  - Urinary tract infection [None]
